FAERS Safety Report 17281478 (Version 2)
Quarter: 2020Q1

REPORT INFORMATION
  Report Type: Report from Study
  Country: US (occurrence: US)
  Receive Date: 20200117
  Receipt Date: 20200306
  Transmission Date: 20200409
  Serious: Yes (Death)
  Sender: FDA-Public Use
  Company Number: US-TAIHO ONCOLOGY  INC-EU-2019-03071

PATIENT
  Age: 50 Year
  Sex: Male

DRUGS (2)
  1. LONSURF [Suspect]
     Active Substance: TIPIRACIL HYDROCHLORIDE\TRIFLURIDINE
     Dosage: CURRENT CYCLE UNKNOWN
     Route: 048
  2. LONSURF [Suspect]
     Active Substance: TIPIRACIL HYDROCHLORIDE\TRIFLURIDINE
     Indication: PLASMA CELL MYELOMA
     Dosage: CURRENT CYCLE UNKNOWN
     Route: 048
     Dates: start: 20190705, end: 20200110

REACTIONS (4)
  - Decreased appetite [Unknown]
  - Intentional product use issue [Unknown]
  - Weight decreased [Unknown]
  - Colorectal cancer metastatic [Fatal]

NARRATIVE: CASE EVENT DATE: 2019
